FAERS Safety Report 20666825 (Version 2)
Quarter: 2022Q2

REPORT INFORMATION
  Report Type: Spontaneous
  Country: US (occurrence: US)
  Receive Date: 20220403
  Receipt Date: 20220406
  Transmission Date: 20220720
  Serious: No
  Sender: FDA-Public Use
  Company Number: US-AMGEN-USASP2022055379

PATIENT
  Age: 55 Year
  Sex: Female

DRUGS (3)
  1. OTEZLA [Suspect]
     Active Substance: APREMILAST
     Indication: Psoriatic arthropathy
     Dosage: FULL DOSE
     Route: 065
     Dates: start: 2022, end: 2022
  2. OTEZLA [Suspect]
     Active Substance: APREMILAST
     Dosage: 1/2 FOR 2 DAYS
     Route: 065
     Dates: start: 2022, end: 2022
  3. OTEZLA [Suspect]
     Active Substance: APREMILAST
     Dosage: HALF MORNING AND HALF EVENING
     Route: 065
     Dates: start: 2022

REACTIONS (6)
  - Therapy partial responder [Unknown]
  - Arthralgia [Unknown]
  - Feeling abnormal [Unknown]
  - Insomnia [Unknown]
  - Asthenia [Unknown]
  - Chest pain [Recovered/Resolved]

NARRATIVE: CASE EVENT DATE: 20220101
